FAERS Safety Report 14682789 (Version 2)
Quarter: 2018Q4

REPORT INFORMATION
  Report Type: Spontaneous
  Country: BR (occurrence: BR)
  Receive Date: 20180327
  Receipt Date: 20181029
  Transmission Date: 20190204
  Serious: Yes (Hospitalization, Other)
  Sender: FDA-Public Use
  Company Number: BR-ALEXION-A201803179

PATIENT
  Sex: Female
  Weight: 77 kg

DRUGS (4)
  1. SOLIRIS [Suspect]
     Active Substance: ECULIZUMAB
     Indication: ATYPICAL HAEMOLYTIC URAEMIC SYNDROME
     Dosage: 900MG EVERY 7 DAYS
     Route: 042
     Dates: start: 20161229, end: 20170119
  2. SOLIRIS [Suspect]
     Active Substance: ECULIZUMAB
     Dosage: 1200MG EVERY 14 DAYS
     Route: 042
     Dates: start: 20170202
  3. SOLIRIS [Suspect]
     Active Substance: ECULIZUMAB
     Dosage: 900 MG, SINGLE
     Route: 065
     Dates: start: 20181023, end: 20181023
  4. SOLIRIS [Suspect]
     Active Substance: ECULIZUMAB
     Dosage: 900 MG, SINGLE
     Route: 065
     Dates: start: 20181024, end: 20181024

REACTIONS (1)
  - Renal transplant failure [Unknown]
